FAERS Safety Report 21034745 (Version 1)
Quarter: 2022Q3

REPORT INFORMATION
  Report Type: Spontaneous
  Country: US (occurrence: None)
  Receive Date: 20220701
  Receipt Date: 20220701
  Transmission Date: 20221027
  Serious: No
  Sender: FDA-Public Use
  Company Number: None

PATIENT
  Age: 37 Year
  Sex: Male

DRUGS (1)
  1. HUMIRA [Suspect]
     Active Substance: ADALIMUMAB
     Dosage: 40MG EVERY 2 WEEKS SUBCUTANEOUS?
     Route: 058

REACTIONS (3)
  - Exposure via skin contact [None]
  - Accidental exposure to product [None]
  - Device defective [None]

NARRATIVE: CASE EVENT DATE: 20220620
